FAERS Safety Report 17541363 (Version 5)
Quarter: 2020Q4

REPORT INFORMATION
  Report Type: Report from Study
  Country: IE (occurrence: IE)
  Receive Date: 20200313
  Receipt Date: 20201220
  Transmission Date: 20210113
  Serious: Yes (Other)
  Sender: FDA-Public Use
  Company Number: IE-JNJFOC-20200229043

PATIENT
  Age: 56 Year
  Sex: Male
  Weight: 116 kg

DRUGS (2)
  1. ZYTIGA [Suspect]
     Active Substance: ABIRATERONE ACETATE
     Indication: PROSTATE CANCER METASTATIC
     Route: 048
     Dates: start: 20191206
  2. PREDNISONE. [Concomitant]
     Active Substance: PREDNISONE
     Route: 065

REACTIONS (5)
  - Spinal cord neoplasm [Not Recovered/Not Resolved]
  - Dyspnoea exertional [Recovering/Resolving]
  - Blood pressure increased [Not Recovered/Not Resolved]
  - Oedema peripheral [Recovering/Resolving]
  - Weight decreased [Not Recovered/Not Resolved]

NARRATIVE: CASE EVENT DATE: 202001
